FAERS Safety Report 22398165 (Version 1)
Quarter: 2023Q2

REPORT INFORMATION
  Report Type: Spontaneous
  Country: US (occurrence: US)
  Receive Date: 20230602
  Receipt Date: 20230602
  Transmission Date: 20230722
  Serious: Yes (Other)
  Sender: FDA-Public Use
  Company Number: US-SA-SAC20230601000644

PATIENT
  Sex: Male
  Weight: 158.7 kg

DRUGS (1)
  1. DUPIXENT [Suspect]
     Active Substance: DUPILUMAB
     Indication: Dermatitis atopic
     Dosage: 300 MG, QOW
     Route: 058
     Dates: start: 20210621

REACTIONS (5)
  - COVID-19 [Unknown]
  - Headache [Unknown]
  - Productive cough [Unknown]
  - Joint swelling [Unknown]
  - Dermatitis atopic [Unknown]
